FAERS Safety Report 6753241-2 (Version None)
Quarter: 2010Q2

REPORT INFORMATION
  Report Type: 
  Country: None (occurrence: None)
  Receive Date: 20100603
  Receipt Date: 20100528
  Transmission Date: 20101027
  Serious: Yes (Death)
  Sender: FDA-Public Use
  Company Number: PHEH2010US02881

PATIENT
  Sex: Female
  Weight: 77.3 kg

DRUGS (8)
  1. EXJADE [Suspect]
     Dosage: 1250 MG, QD
     Route: 048
     Dates: start: 20100202
  2. CELL CEPT [Concomitant]
     Indication: IMMUNOSUPPRESSION
     Dosage: 1GM DAILY
     Route: 042
     Dates: start: 20090707
  3. SOLU-MEDROL [Concomitant]
     Dosage: 10 MG DAILY
     Route: 042
     Dates: start: 20100102
  4. MEROPENEM [Concomitant]
     Dosage: 500 MG, Q8H
     Route: 042
     Dates: start: 20100119
  5. TYGACIL [Concomitant]
     Indication: INFECTION
     Route: 042
  6. VELTEX [Concomitant]
     Dosage: 500 MG DAILY
     Route: 048
     Dates: start: 20100110
  7. POSACONAZOLE [Concomitant]
     Indication: INFECTION
     Dosage: 100 MG DAILY
     Route: 048
     Dates: start: 20100126
  8. DAPTOMYCIN [Concomitant]
     Dosage: 400 MG DAILY
     Route: 042
     Dates: start: 20100126

REACTIONS (4)
  - CORD BLOOD TRANSPLANT THERAPY [None]
  - FUNGAL SEPSIS [None]
  - GRAFT VERSUS HOST DISEASE [None]
  - IMMUNOSUPPRESSION [None]
